FAERS Safety Report 8865873 (Version 1)
Quarter: 2012Q4

REPORT INFORMATION
  Report Type: 
  Country: US (occurrence: US)
  Receive Date: 20121025
  Receipt Date: 20121025
  Transmission Date: 20130627
  Serious: No
  Sender: FDA-Public Use
  Company Number: US-ABBOTT-12P-163-0932639-00

PATIENT
  Sex: Male

DRUGS (2)
  1. LUPRON DEPOT 3.75 MG [Suspect]
     Indication: TRANSGENDER HORMONAL THERAPY
     Dosage: 3 injections received so far.
     Route: 050
     Dates: start: 2012
  2. ESTROGEN [Concomitant]
     Indication: TRANSGENDER HORMONAL THERAPY

REACTIONS (6)
  - Off label use [Not Recovered/Not Resolved]
  - Transgender hormonal therapy [Not Recovered/Not Resolved]
  - Skin disorder [Not Recovered/Not Resolved]
  - Muscle atrophy [Not Recovered/Not Resolved]
  - Hair growth abnormal [Not Recovered/Not Resolved]
  - Drug ineffective for unapproved indication [Not Recovered/Not Resolved]
